FAERS Safety Report 9285758 (Version 4)
Quarter: 2013Q3

REPORT INFORMATION
  Report Type: Spontaneous
  Country: US (occurrence: US)
  Receive Date: 20130513
  Receipt Date: 20130819
  Transmission Date: 20140515
  Serious: Yes (Other)
  Sender: FDA-Public Use
  Company Number: US-PFIZER INC-2013142945

PATIENT
  Age: 68 Year
  Sex: Female
  Weight: 63.49 kg

DRUGS (5)
  1. LIPITOR [Suspect]
     Indication: BLOOD CHOLESTEROL INCREASED
     Dosage: 20 MG, DAILY
     Dates: start: 201304, end: 201304
  2. BENICAR [Suspect]
     Indication: FLUID RETENTION
     Dosage: 20 MG, 2X/DAY
  3. BENICAR [Suspect]
     Indication: HYPERTENSION
  4. LYRICA [Concomitant]
     Dosage: UNK
  5. DIFLUCAN [Concomitant]
     Dosage: UNK

REACTIONS (8)
  - Dizziness [Recovered/Resolved]
  - Dysstasia [Recovered/Resolved]
  - Nausea [Recovered/Resolved]
  - Pain [Recovered/Resolved]
  - Feeling abnormal [Recovered/Resolved]
  - Local swelling [Unknown]
  - Histrionic personality disorder [Unknown]
  - Malaise [Unknown]
